FAERS Safety Report 5380125-7 (Version None)
Quarter: 2007Q2

REPORT INFORMATION
  Report Type: 
  Country: None (occurrence: None)
  Receive Date: 20070530
  Receipt Date: 20070307
  Transmission Date: 20071010
  Serious: No
  Sender: FDA-Public Use
  Company Number: 2007PV031287

PATIENT
  Age: 74 Year
  Sex: Female
  Weight: 92.9874 kg

DRUGS (6)
  1. BYETTA [Suspect]
     Indication: DIABETES MELLITUS NON-INSULIN-DEPENDENT
     Dosage: 10 MCG; BID; SC; 5 MCG; BID; SC
     Route: 058
     Dates: start: 20060401, end: 20060601
  2. BYETTA [Suspect]
     Indication: DIABETES MELLITUS NON-INSULIN-DEPENDENT
     Dosage: 10 MCG; BID; SC; 5 MCG; BID; SC
     Route: 058
     Dates: start: 20060601
  3. ACTOS [Concomitant]
  4. TOPROL-XL [Concomitant]
  5. DETROL [Concomitant]
  6. VITAMIN D [Concomitant]

REACTIONS (3)
  - FATIGUE [None]
  - INCREASED APPETITE [None]
  - WEIGHT DECREASED [None]
